FAERS Safety Report 25966059 (Version 1)
Quarter: 2025Q4

REPORT INFORMATION
  Report Type: Spontaneous
  Country: SA (occurrence: None)
  Receive Date: 20251028
  Receipt Date: 20251028
  Transmission Date: 20260118
  Serious: Yes (Other)
  Sender: Alvotech
  Company Number: SA-ALVOTECHPMS-2025-ALVOTECHPMS-005497

PATIENT
  Age: 39 Year
  Sex: Male

DRUGS (2)
  1. ADALIMUMAB [Suspect]
     Active Substance: ADALIMUMAB
     Indication: Polychondritis
     Dosage: 40 MG EVERY 2 WEEKS
  2. PREDNISOLONE [Concomitant]
     Active Substance: PREDNISOLONE
     Indication: Polychondritis
     Dosage: 20 MG PER DAY
     Route: 048

REACTIONS (3)
  - Colitis ulcerative [Recovered/Resolved]
  - Drug ineffective [Unknown]
  - Off label use [Unknown]
